FAERS Safety Report 14653678 (Version 1)
Quarter: 2018Q1

REPORT INFORMATION
  Report Type: Spontaneous
  Country: US (occurrence: US)
  Receive Date: 20180319
  Receipt Date: 20180319
  Transmission Date: 20180509
  Serious: No
  Sender: FDA-Public Use
  Company Number: US-PFIZER INC-2018111679

PATIENT
  Age: 44 Year
  Sex: Male
  Weight: 81.65 kg

DRUGS (1)
  1. TESTOSTERONE CIPIONATE [Suspect]
     Active Substance: TESTOSTERONE
     Dosage: UNK UNK, CYCLIC (EVERY TWO WEEKS)

REACTIONS (1)
  - Drug ineffective [Unknown]
